FAERS Safety Report 14679844 (Version 3)
Quarter: 2018Q2

REPORT INFORMATION
  Report Type: Spontaneous
  Country: US (occurrence: US)
  Receive Date: 20180326
  Receipt Date: 20180423
  Transmission Date: 20180711
  Serious: No
  Sender: FDA-Public Use
  Company Number: US-JNJFOC-20180318390

PATIENT
  Age: 20 Year
  Sex: Male
  Weight: 104.33 kg

DRUGS (2)
  1. RISPERDAL CONSTA [Suspect]
     Active Substance: RISPERIDONE
     Indication: BIPOLAR DISORDER
     Route: 042
  2. RISPERDAL CONSTA [Suspect]
     Active Substance: RISPERIDONE
     Indication: BIPOLAR DISORDER
     Route: 042

REACTIONS (5)
  - Drug dose omission [Unknown]
  - Incorrect route of drug administration [Unknown]
  - Incorrect dose administered [Unknown]
  - Device leakage [Unknown]
  - Device defective [Unknown]

NARRATIVE: CASE EVENT DATE: 20180313
